FAERS Safety Report 18328041 (Version 1)
Quarter: 2020Q3

REPORT INFORMATION
  Report Type: Spontaneous
  Country: GB (occurrence: GB)
  Receive Date: 20200930
  Receipt Date: 20200930
  Transmission Date: 20201103
  Serious: Yes (Death, Hospitalization, Other)
  Sender: FDA-Public Use
  Company Number: GB-009507513-2009GBR009319

PATIENT
  Age: 72 Year
  Sex: Female

DRUGS (7)
  1. OSIMERTINIB. [Interacting]
     Active Substance: OSIMERTINIB
     Indication: NON-SMALL CELL LUNG CANCER STAGE IV
     Dosage: UNK
     Route: 048
     Dates: start: 20190319, end: 20190412
  2. CARBOPLATIN. [Concomitant]
     Active Substance: CARBOPLATIN
     Indication: NON-SMALL CELL LUNG CANCER STAGE IV
     Dosage: 2 CYCLES WITH PEMETREXED
  3. PEMETREXED DISODIUM [Concomitant]
     Active Substance: PEMETREXED DISODIUM
     Indication: NON-SMALL CELL LUNG CANCER STAGE IV
     Dosage: 2 CYCLES WITH CARBOPLATIN
  4. PEMETREXED DISODIUM [Concomitant]
     Active Substance: PEMETREXED DISODIUM
     Dosage: 2 CYCLES WITH CARBOPLATIN AND PEMROLIZUMAB
  5. PEMBROLIZUMAB. [Interacting]
     Active Substance: PEMBROLIZUMAB
     Dosage: 2 CYCLES WITH CARBOPLATIN AND PEMETREXED
     Dates: start: 20190226
  6. PEMBROLIZUMAB. [Suspect]
     Active Substance: PEMBROLIZUMAB
     Indication: NON-SMALL CELL LUNG CANCER STAGE IV
     Dosage: 2 CYCLES WITH CARBOPLATIN AND PEMETREXED
     Dates: start: 20190207
  7. CARBOPLATIN. [Concomitant]
     Active Substance: CARBOPLATIN
     Dosage: 2 CYCLES WITH PEMETREXED AND PEMROLIZUMAB

REACTIONS (4)
  - Drug interaction [Unknown]
  - Toxic epidermal necrolysis [Fatal]
  - Immune-mediated pneumonitis [Fatal]
  - Off label use [Unknown]

NARRATIVE: CASE EVENT DATE: 20190207
